FAERS Safety Report 25892626 (Version 1)
Quarter: 2025Q4

REPORT INFORMATION
  Report Type: Spontaneous
  Country: US (occurrence: US)
  Receive Date: 20251007
  Receipt Date: 20251007
  Transmission Date: 20260117
  Serious: No
  Sender: BAYER HEALTHCARE LLC
  Company Number: US-BAYER-2025A132180

PATIENT

DRUGS (2)
  1. AFRIN ORIGINAL NASAL [Suspect]
     Active Substance: OXYMETAZOLINE HYDROCHLORIDE
     Indication: Ear disorder
  2. CLARITIN [Suspect]
     Active Substance: LORATADINE
     Indication: Ear disorder

REACTIONS (1)
  - Drug effective for unapproved indication [Unknown]
